FAERS Safety Report 10040961 (Version 1)
Quarter: 2014Q1

REPORT INFORMATION
  Report Type: Spontaneous
  Country: US (occurrence: None)
  Receive Date: 20140326
  Receipt Date: 20140326
  Transmission Date: 20141002
  Serious: Yes (Death, Hospitalization)
  Sender: FDA-Public Use
  Company Number: None

PATIENT
  Age: 73 Year
  Sex: Female
  Weight: 51.9 kg

DRUGS (3)
  1. BEVACIZUMAB (RHUMAB VEGF) (704865) [Suspect]
  2. CARBOPLATIN [Suspect]
  3. PACLITAXEL (TAXOL) [Suspect]

REACTIONS (14)
  - Hypophagia [None]
  - Asthenia [None]
  - Fatigue [None]
  - Dysuria [None]
  - Tachycardia [None]
  - Blood urea increased [None]
  - Blood creatinine increased [None]
  - Hypovolaemia [None]
  - Atrial fibrillation [None]
  - Neutropenia [None]
  - Urinary tract infection fungal [None]
  - Hypotension [None]
  - Sepsis [None]
  - Respiratory disorder [None]
